FAERS Safety Report 7417422-7 (Version None)
Quarter: 2011Q2

REPORT INFORMATION
  Report Type: 
  Country: None (occurrence: None)
  Receive Date: 20110412
  Receipt Date: 20110412
  Transmission Date: 20111010
  Serious: Yes (Other)
  Sender: FDA-Public Use
  Company Number: None

PATIENT
  Age: 41 Year
  Sex: Female
  Weight: 96.6162 kg

DRUGS (1)
  1. PREDNISONE [Suspect]
     Indication: NASAL POLYPS
     Dosage: 60MG X 7 DAYS 40MG X 7 DAYS 20 MG X 7 DAYS 10 MG X 7 DAYS
     Dates: start: 20110204, end: 20110227

REACTIONS (1)
  - BLINDNESS UNILATERAL [None]
